FAERS Safety Report 8157074 (Version 7)
Quarter: 2013Q2

REPORT INFORMATION
  Report Type: Spontaneous
  Country: US (occurrence: US)
  Receive Date: 20110926
  Receipt Date: 20130508
  Transmission Date: 20140414
  Serious: Yes (Other)
  Sender: FDA-Public Use
  Company Number: US-ASTRAZENECA-2011SE50785

PATIENT
  Age: 58 Year
  Sex: Female

DRUGS (1)
  1. NEXIUM [Suspect]
     Route: 048

REACTIONS (11)
  - Myocardial infarction [Unknown]
  - Injury [Unknown]
  - Dyspepsia [Unknown]
  - Road traffic accident [Unknown]
  - Back injury [Unknown]
  - Gastrooesophageal reflux disease [Unknown]
  - Dyspepsia [Unknown]
  - Mobility decreased [Unknown]
  - Sleep disorder due to general medical condition, insomnia type [Unknown]
  - Aphagia [Unknown]
  - Drug dose omission [Unknown]
